FAERS Safety Report 16322519 (Version 2)
Quarter: 2019Q2

REPORT INFORMATION
  Report Type: Report from Study
  Country: US (occurrence: US)
  Receive Date: 20190516
  Receipt Date: 20190601
  Transmission Date: 20190711
  Serious: Yes (Hospitalization, Other)
  Sender: FDA-Public Use
  Company Number: US-TEVA-2019-US-1049584

PATIENT
  Age: 61 Year
  Sex: Male

DRUGS (5)
  1. FLUOROURACIL. [Suspect]
     Active Substance: FLUOROURACIL
     Indication: RECTAL CANCER
     Dosage: FIRST AND LAST CYCLE, RECEIVED 11 CYCLES
     Route: 065
  2. ZALTRAP [Suspect]
     Active Substance: ZIV-AFLIBERCEPT
     Indication: RECTAL CANCER
     Dosage: FIRST AND LAST CYCLE, RECEIVED 11 CYCLES
     Route: 065
  3. LEUCOVORIN. [Suspect]
     Active Substance: LEUCOVORIN
     Indication: RECTAL CANCER
     Dosage: CYCLE 1, RECEIVED 11 CYCLES
     Route: 065
  4. IRINOTECAN [Suspect]
     Active Substance: IRINOTECAN
     Indication: RECTAL CANCER
     Dosage: CYCLE 1
     Route: 065
  5. IRINOTECAN [Suspect]
     Active Substance: IRINOTECAN
     Indication: RECTAL CANCER
     Dosage: LAST CYCLE, RECEIVED 11 CYCLES
     Route: 065

REACTIONS (3)
  - Toxicity to various agents [Unknown]
  - Septic shock [Unknown]
  - Neutropenia [Unknown]
